FAERS Safety Report 21372842 (Version 1)
Quarter: 2022Q3

REPORT INFORMATION
  Report Type: Report from Study
  Country: CH (occurrence: CH)
  Receive Date: 20220924
  Receipt Date: 20220924
  Transmission Date: 20221027
  Serious: Yes (Other)
  Sender: FDA-Public Use
  Company Number: CH-ABBVIE-4129049

PATIENT
  Age: 84 Year
  Sex: Female

DRUGS (3)
  1. CARBIDOPA\LEVODOPA [Suspect]
     Active Substance: CARBIDOPA\LEVODOPA
     Indication: Parkinson^s disease
     Dosage: MD: 8 ML, CRD: 7 ML/H, CRN: 0 ML/H, ED: 1 ML, 16H THERAPY
     Route: 050
     Dates: start: 20220623, end: 20220624
  2. CARBIDOPA\LEVODOPA [Suspect]
     Active Substance: CARBIDOPA\LEVODOPA
     Dosage: MD: 8 ML, CRD: 7.8 ML/H, CRN: 0 ML/H, ED: 1 ML, 16H THERAPY
     Route: 050
     Dates: start: 20220627
  3. CARBIDOPA\LEVODOPA [Suspect]
     Active Substance: CARBIDOPA\LEVODOPA
     Dosage: MD: 8 ML, CRD: 7.5 ML/H, CRN: 0 ML/H, ED: 1 ML, 16H THERAPY
     Route: 050
     Dates: start: 20220624, end: 20220627

REACTIONS (3)
  - Internal injury [Unknown]
  - Swelling [Not Recovered/Not Resolved]
  - Stoma site pain [Not Recovered/Not Resolved]

NARRATIVE: CASE EVENT DATE: 20220913
